FAERS Safety Report 6219032-6 (Version None)
Quarter: 2009Q2

REPORT INFORMATION
  Report Type: 
  Country: None (occurrence: None)
  Receive Date: 20090608
  Receipt Date: 20090527
  Transmission Date: 20091009
  Serious: Yes (Other)
  Sender: FDA-Public Use
  Company Number: DE-PFIZER INC-2009219245

PATIENT
  Age: 31 Year

DRUGS (1)
  1. LYRICA [Suspect]
     Indication: GLOSSOPHARYNGEAL NEURALGIA
     Dosage: UNK

REACTIONS (1)
  - MYALGIA [None]
